FAERS Safety Report 7554854-0 (Version None)
Quarter: 2011Q2

REPORT INFORMATION
  Report Type: 
  Country: None (occurrence: None)
  Receive Date: 20110610
  Receipt Date: 20110526
  Transmission Date: 20111010
  Serious: Yes (Other)
  Sender: FDA-Public Use
  Company Number: 13480694

PATIENT
  Age: 58 Year
  Sex: Female
  Weight: 110 kg

DRUGS (1)
  1. CARDIOLITE [Suspect]
     Indication: CARDIAC DISORDER
     Dosage: (1 IN 1 D), INTRAVENOUS (NOT OTHERWISE
SPECIFIED)
     Route: 042
     Dates: start: 20060726, end: 20060726

REACTIONS (9)
  - CHEST PAIN [None]
  - MUSCLE SPASMS [None]
  - LOSS OF CONSCIOUSNESS [None]
  - TRAUMATIC FRACTURE [None]
  - SPINAL FRACTURE [None]
  - CONVULSION [None]
  - POST-TRAUMATIC STRESS DISORDER [None]
  - HYPOAESTHESIA [None]
  - MONOPLEGIA [None]
